FAERS Safety Report 11809865 (Version 2)
Quarter: 2016Q1

REPORT INFORMATION
  Report Type: Spontaneous
  Country: JP (occurrence: JP)
  Receive Date: 20151208
  Receipt Date: 20160209
  Transmission Date: 20160525
  Serious: Yes (Hospitalization)
  Sender: FDA-Public Use
  Company Number: JP-ASTRAZENECA-2015SF22510

PATIENT
  Age: 17398 Day
  Sex: Female

DRUGS (6)
  1. SOLANAX [Suspect]
     Active Substance: ALPRAZOLAM
     Route: 048
     Dates: start: 20150824, end: 20150824
  2. PRANLUKAST [Suspect]
     Active Substance: PRANLUKAST
     Route: 048
     Dates: start: 20150824, end: 20150824
  3. JZOLOFT [Suspect]
     Active Substance: SERTRALINE HYDROCHLORIDE
     Route: 048
     Dates: start: 20150824, end: 20150824
  4. BIPERIDEN HYDROCHLORIDE [Suspect]
     Active Substance: BIPERIDEN HYDROCHLORIDE
     Route: 048
     Dates: start: 20150824, end: 20150824
  5. NEXIUM [Suspect]
     Active Substance: ESOMEPRAZOLE MAGNESIUM
     Route: 048
     Dates: start: 20150824, end: 20150824
  6. REBAMIPIDE [Suspect]
     Active Substance: REBAMIPIDE
     Route: 048
     Dates: start: 20150824, end: 20150824

REACTIONS (3)
  - Depressed level of consciousness [Recovered/Resolved]
  - Dizziness [Recovered/Resolved]
  - Overdose [Recovered/Resolved]

NARRATIVE: CASE EVENT DATE: 20150824
